FAERS Safety Report 9168158 (Version 1)
Quarter: 2013Q1

REPORT INFORMATION
  Report Type: Spontaneous
  Country: US (occurrence: None)
  Receive Date: 20130313
  Receipt Date: 20130313
  Transmission Date: 20140127
  Serious: Yes (Death)
  Sender: FDA-Public Use
  Company Number: 2013AP003372

PATIENT
  Sex: Female

DRUGS (2)
  1. METFORMIN HCL TABS [Suspect]
  2. SITAGLIPTIN [Suspect]

REACTIONS (1)
  - Death [None]
